FAERS Safety Report 17018138 (Version 6)
Quarter: 2019Q4

REPORT INFORMATION
  Report Type: Report from Study
  Country: US (occurrence: US)
  Receive Date: 20191111
  Receipt Date: 20191224
  Transmission Date: 20200122
  Serious: Yes (Hospitalization)
  Sender: FDA-Public Use
  Company Number: US-ACTELION-A-US2019-197530

PATIENT
  Age: 77 Year
  Sex: Female
  Weight: 55.78 kg

DRUGS (9)
  1. VELETRI [Suspect]
     Active Substance: EPOPROSTENOL
     Dosage: 13 NG/KG, PER MIN
     Route: 042
  2. ADEMPAS [Suspect]
     Active Substance: RIOCIGUAT
     Indication: PRODUCT USED FOR UNKNOWN INDICATION
     Dosage: 2 MG, TID
     Route: 065
  3. VELETRI [Suspect]
     Active Substance: EPOPROSTENOL
     Indication: PULMONARY ARTERIAL HYPERTENSION
     Dosage: 12 NG/KG, PER MIN
     Route: 042
     Dates: start: 20191009
  4. VELETRI [Suspect]
     Active Substance: EPOPROSTENOL
     Dosage: 16 NG/KG, PER MIN
     Route: 042
  5. OPSUMIT [Suspect]
     Active Substance: MACITENTAN
     Indication: PULMONARY ARTERIAL HYPERTENSION
     Dosage: 10 MG, QD
     Route: 048
     Dates: start: 201904
  6. UPTRAVI [Concomitant]
     Active Substance: SELEXIPAG
  7. ADEMPAS [Suspect]
     Active Substance: RIOCIGUAT
     Dosage: UNK
     Route: 065
     Dates: start: 20191115
  8. ELIQUIS [Concomitant]
     Active Substance: APIXABAN
  9. VELETRI [Suspect]
     Active Substance: EPOPROSTENOL
     Dosage: 11 NG/KG, PER MIN
     Route: 042

REACTIONS (12)
  - Decreased appetite [Unknown]
  - Weight increased [Unknown]
  - Dyspnoea [Recovering/Resolving]
  - Pain in extremity [Unknown]
  - Blood pressure decreased [Unknown]
  - Diarrhoea [Unknown]
  - Headache [Recovering/Resolving]
  - Palpitations [Unknown]
  - Chest discomfort [Not Recovered/Not Resolved]
  - Asthenia [Unknown]
  - Abdominal discomfort [Recovering/Resolving]
  - Fluid retention [Unknown]

NARRATIVE: CASE EVENT DATE: 20191009
